FAERS Safety Report 4693010-0 (Version None)
Quarter: 2005Q2

REPORT INFORMATION
  Report Type: 
  Country: None (occurrence: None)
  Receive Date: 20050617
  Receipt Date: 20050315
  Transmission Date: 20051028
  Serious: Yes (Other)
  Sender: FDA-Public Use
  Company Number: US-BRISTOL-MYERS SQUIBB COMPANY-12898516

PATIENT
  Age: 14 Year
  Sex: Male

DRUGS (5)
  1. ABILIFY [Suspect]
     Indication: TOURETTE'S DISORDER
     Dosage: INITIATED AT 2.5 MG/DAY
  2. ABILIFY [Suspect]
     Indication: ATTENTION DEFICIT/HYPERACTIVITY DISORDER
     Dosage: INITIATED AT 2.5 MG/DAY
  3. ABILIFY [Suspect]
     Indication: OBSESSIVE-COMPULSIVE DISORDER
     Dosage: INITIATED AT 2.5 MG/DAY
  4. STRATTERA [Concomitant]
  5. CELEXA [Concomitant]

REACTIONS (3)
  - ANAEMIA [None]
  - CROHN'S DISEASE [None]
  - VASCULITIS [None]
